FAERS Safety Report 5210982-6 (Version None)
Quarter: 2006Q4

REPORT INFORMATION
  Report Type: 
  Country: None (occurrence: None)
  Receive Date: 20061130
  Receipt Date: 20060623
  Transmission Date: 20070319
  Serious: Yes (Other)
  Sender: FDA-Public Use
  Company Number: WAES 0510USA03399

PATIENT

DRUGS (1)
  1. FOSAMAX [Suspect]
     Dosage: PO
     Route: 048

REACTIONS (1)
  - OSTEONECROSIS [None]
